FAERS Safety Report 5078676-8 (Version None)
Quarter: 2006Q3

REPORT INFORMATION
  Report Type: 
  Country: None (occurrence: None)
  Receive Date: 20060810
  Receipt Date: 20060810
  Transmission Date: 20061208
  Serious: Yes (Hospitalization)
  Sender: FDA-Public Use
  Company Number: None

PATIENT
  Age: 46 Year
  Sex: Female
  Weight: 90 kg

DRUGS (13)
  1. LOVENOX [Suspect]
     Indication: DEEP VEIN THROMBOSIS
     Dosage: 90 MG Q 12 H SQ
     Route: 058
     Dates: start: 20060122, end: 20060124
  2. LOVENOX [Suspect]
     Indication: PULMONARY EMBOLISM
     Dosage: 90 MG Q 12 H SQ
     Route: 058
     Dates: start: 20060122, end: 20060124
  3. LOVENOX [Suspect]
     Indication: DEEP VEIN THROMBOSIS
     Dosage: 90 MG Q 12 H SQ
     Route: 058
     Dates: start: 20060127, end: 20060129
  4. LOVENOX [Suspect]
     Indication: PULMONARY EMBOLISM
     Dosage: 90 MG Q 12 H SQ
     Route: 058
     Dates: start: 20060127, end: 20060129
  5. WELLBUTRIN [Concomitant]
  6. FAMOTIDINE [Concomitant]
  7. TPN SUSPENSION [Concomitant]
  8. FLUOXETINE [Concomitant]
  9. HYDROMORPHONE HCL [Concomitant]
  10. REGULAR INSULIN [Concomitant]
  11. MIRTAZAPINE [Concomitant]
  12. PIPERACILLIN AND TAZOBACTAM [Concomitant]
  13. ZIPRASIDONE HCL [Concomitant]

REACTIONS (3)
  - OVARIAN ABSCESS [None]
  - PELVIC HAEMORRHAGE [None]
  - POST PROCEDURAL HAEMORRHAGE [None]
